FAERS Safety Report 9818430 (Version 1)
Quarter: 2014Q1

REPORT INFORMATION
  Report Type: Spontaneous
  Country: CN (occurrence: CN)
  Receive Date: 20140115
  Receipt Date: 20140115
  Transmission Date: 20141002
  Serious: Yes (Hospitalization)
  Sender: FDA-Public Use
  Company Number: CN-BANPHARM-20142017

PATIENT
  Age: 37 Year
  Sex: Female

DRUGS (3)
  1. PROGESTERONE UNKNOWN PRODUCT [Suspect]
     Indication: MENSTRUATION IRREGULAR
  2. SALMETEROL XINAFOATE [Concomitant]
     Dosage: 1 PUFF, QD,
     Route: 055
  3. FLUTICASONE PROPIONATE POWDER [Concomitant]
     Dosage: 1 PUFF, QD,
     Route: 055

REACTIONS (3)
  - Kounis syndrome [Recovering/Resolving]
  - Myocardial infarction [Recovering/Resolving]
  - Cardiogenic shock [Recovering/Resolving]
